FAERS Safety Report 5237755-2 (Version None)
Quarter: 2007Q1

REPORT INFORMATION
  Report Type: 
  Country: None (occurrence: None)
  Receive Date: 20070214
  Receipt Date: 20070209
  Transmission Date: 20070707
  Serious: Yes (Hospitalization, Disabling)
  Sender: FDA-Public Use
  Company Number: JP-JPN-A200602388

PATIENT
  Sex: Male

DRUGS (5)
  1. ZOVIRAX [Suspect]
     Indication: VARICELLA
     Dosage: 1TAB FOUR TIMES PER DAY
     Route: 048
     Dates: start: 20060624, end: 20060628
  2. LOXONIN [Concomitant]
     Route: 065
  3. CALONAL [Concomitant]
     Route: 065
  4. JAPANESE MEDICATION [Concomitant]
     Dosage: 1500MG PER DAY
     Route: 042
     Dates: start: 20060628
  5. MEROPEN [Concomitant]
     Indication: SEPSIS
     Dosage: 3G PER DAY
     Route: 042
     Dates: start: 20060628

REACTIONS (9)
  - APHASIA [None]
  - CONVULSION [None]
  - DEPRESSED LEVEL OF CONSCIOUSNESS [None]
  - ENCEPHALITIS HERPES [None]
  - MUSCLE SPASMS [None]
  - PERSONALITY CHANGE [None]
  - PYREXIA [None]
  - SEPSIS [None]
  - TOXIC INDUCED ENCEPHALOPATHY [None]
